FAERS Safety Report 14667091 (Version 1)
Quarter: 2018Q1

REPORT INFORMATION
  Report Type: Spontaneous
  Country: FR (occurrence: FR)
  Receive Date: 20180322
  Receipt Date: 20180322
  Transmission Date: 20180509
  Serious: Yes (Other)
  Sender: FDA-Public Use
  Company Number: FR-MERCK KGAA-2044270

PATIENT
  Age: 54 Year
  Sex: Female

DRUGS (1)
  1. NOVOTHYROX [Suspect]
     Active Substance: LEVOTHYROXINE SODIUM
     Indication: AUTOIMMUNE THYROIDITIS

REACTIONS (14)
  - Loss of personal independence in daily activities [None]
  - Irritability [None]
  - Personal relationship issue [None]
  - Headache [None]
  - Dizziness [None]
  - Myalgia [None]
  - Muscle spasms [None]
  - Insomnia [None]
  - Fatigue [None]
  - Pyrexia [None]
  - Tachycardia [None]
  - Anxiety [None]
  - Impaired driving ability [None]
  - Asthenia [None]

NARRATIVE: CASE EVENT DATE: 201706
